FAERS Safety Report 15390470 (Version 1)
Quarter: 2018Q3

REPORT INFORMATION
  Report Type: Spontaneous
  Country: US (occurrence: US)
  Receive Date: 20180909
  Receipt Date: 20180909
  Transmission Date: 20181010
  Serious: No
  Sender: FDA-Public Use
  Company Number: None

PATIENT
  Age: 54 Year
  Sex: Female

DRUGS (1)
  1. BIOTE (ESTROGENS\TESTOSTERONE) [Suspect]
     Active Substance: ESTROGENS\TESTOSTERONE
     Indication: HORMONE LEVEL ABNORMAL
     Dosage: ?          OTHER FREQUENCY:3?4X YR;?
     Route: 058
     Dates: start: 20170801, end: 20180906

REACTIONS (7)
  - Arthralgia [None]
  - Breast pain [None]
  - Alopecia [None]
  - Skin exfoliation [None]
  - Weight increased [None]
  - Insomnia [None]
  - Dry skin [None]

NARRATIVE: CASE EVENT DATE: 20180601
